FAERS Safety Report 13422034 (Version 2)
Quarter: 2018Q1

REPORT INFORMATION
  Report Type: Spontaneous
  Country: US (occurrence: US)
  Receive Date: 20170410
  Receipt Date: 20180304
  Transmission Date: 20180508
  Serious: Yes (Death, Hospitalization, Other)
  Sender: FDA-Public Use
  Company Number: US-B.I. PHARMACEUTICALS,INC./RIDGEFIELD-2017-BI-020259

PATIENT
  Age: 78 Year
  Sex: Female

DRUGS (1)
  1. SPIRIVA RESPIMAT [Suspect]
     Active Substance: TIOTROPIUM BROMIDE
     Indication: CHRONIC OBSTRUCTIVE PULMONARY DISEASE
     Dosage: 1 CAPSULE;  FORM STRENGTH: 2.5 MCG; ACTION(S) TAKEN WITH PRODUCT: NOT APPLICABLE
     Route: 055
     Dates: start: 2012

REACTIONS (2)
  - Death [Fatal]
  - Acute respiratory failure [Unknown]

NARRATIVE: CASE EVENT DATE: 201704
